FAERS Safety Report 13562684 (Version 1)
Quarter: 2017Q2

REPORT INFORMATION
  Report Type: Spontaneous
  Country: JP (occurrence: JP)
  Receive Date: 20170519
  Receipt Date: 20170519
  Transmission Date: 20170830
  Serious: Yes (Hospitalization)
  Sender: FDA-Public Use
  Company Number: JP-LEO PHARMA-287600

PATIENT
  Age: 52 Year
  Sex: Male
  Weight: 63 kg

DRUGS (6)
  1. PROTOPIC [Suspect]
     Active Substance: TACROLIMUS
     Indication: DERMATITIS ATOPIC
     Dosage: UNK UNK, UNKNOWN FREQ.
     Route: 065
     Dates: start: 20151112, end: 20151217
  2. ZINC OXIDE. [Concomitant]
     Active Substance: ZINC OXIDE
     Indication: DERMATITIS ATOPIC
     Dosage: UNK UNK, TWICE DAILY
     Route: 061
     Dates: end: 20151217
  3. PROTOPIC [Suspect]
     Active Substance: TACROLIMUS
     Dosage: ADEQUATE DOSE, TWICE DAILY
     Route: 061
     Dates: start: 20151217
  4. CICLOSPORIN [Suspect]
     Active Substance: CYCLOSPORINE
     Indication: DERMATITIS ATOPIC
     Dosage: UNK UNK, AS NEEDED
     Route: 048
  5. WHITE PETROLATUM [Concomitant]
     Active Substance: PETROLATUM
     Indication: DERMATITIS ATOPIC
     Dosage: UNK UNK, TWICE DAILY
     Route: 061
     Dates: end: 20151217
  6. DERMOVATE [Suspect]
     Active Substance: CLOBETASOL
     Indication: DERMATITIS ATOPIC
     Dosage: UNK UNK, TWICE DAILY
     Dates: end: 20151217

REACTIONS (1)
  - Septic arthritis staphylococcal [Recovering/Resolving]

NARRATIVE: CASE EVENT DATE: 20151106
